FAERS Safety Report 9399792 (Version 1)
Quarter: 2013Q3

REPORT INFORMATION
  Report Type: Report from Study
  Country: US (occurrence: US)
  Receive Date: 20130715
  Receipt Date: 20130715
  Transmission Date: 20140515
  Serious: Yes (Other)
  Sender: FDA-Public Use
  Company Number: PHEH2013US014715

PATIENT
  Age: 82 Year
  Sex: Male

DRUGS (3)
  1. TOBI [Suspect]
     Dosage: 300 MG, BID
     Dates: start: 20130427
  2. SPIRIVA [Concomitant]
     Dosage: UNK UKN, UNK
  3. ALBUTEROL [Concomitant]
     Dosage: UNK UKN, UNK

REACTIONS (4)
  - Condition aggravated [Not Recovered/Not Resolved]
  - Umbilical hernia [Not Recovered/Not Resolved]
  - Cough [Not Recovered/Not Resolved]
  - Dyspnoea [Not Recovered/Not Resolved]
